FAERS Safety Report 23816634 (Version 1)
Quarter: 2024Q2

REPORT INFORMATION
  Report Type: Other
  Country: PL (occurrence: PL)
  Receive Date: 20240503
  Receipt Date: 20240503
  Transmission Date: 20240716
  Serious: Yes (Other)
  Sender: FDA-Public Use
  Company Number: None

PATIENT
  Age: 39 Year

DRUGS (3)
  1. IBUPROFEN [Suspect]
     Active Substance: IBUPROFEN
     Indication: Off label use
     Dosage: UNK
     Route: 065
     Dates: start: 201505
  2. IBUPROFEN [Suspect]
     Active Substance: IBUPROFEN
     Indication: Trigeminal neuralgia
  3. ACETAMINOPHEN [Suspect]
     Active Substance: ACETAMINOPHEN
     Indication: Trigeminal neuralgia
     Dosage: UNK
     Route: 065
     Dates: start: 201505

REACTIONS (2)
  - Pain [Recovered/Resolved]
  - Off label use [Unknown]

NARRATIVE: CASE EVENT DATE: 20150501
